FAERS Safety Report 20408339 (Version 1)
Quarter: 2022Q1

REPORT INFORMATION
  Report Type: Spontaneous
  Country: JP (occurrence: JP)
  Receive Date: 20220201
  Receipt Date: 20220201
  Transmission Date: 20220423
  Serious: Yes (Other)
  Sender: FDA-Public Use
  Company Number: JP-CHUGAI-2022001673

PATIENT
  Age: 80 Year
  Sex: Male

DRUGS (8)
  1. TECENTRIQ [Suspect]
     Active Substance: ATEZOLIZUMAB
     Indication: Non-small cell lung cancer
     Dosage: UNK UNK, QD
     Route: 041
     Dates: start: 20211015, end: 20211015
  2. TECENTRIQ [Suspect]
     Active Substance: ATEZOLIZUMAB
     Dosage: UNK UNK, QD
     Route: 041
     Dates: start: 20211119, end: 20211119
  3. AVASTIN [Suspect]
     Active Substance: BEVACIZUMAB
     Indication: Non-small cell lung cancer
     Dosage: UNK UNK, QD
     Route: 041
     Dates: start: 20211015, end: 20211015
  4. AVASTIN [Suspect]
     Active Substance: BEVACIZUMAB
     Dosage: UNK UNK, QD
     Route: 041
     Dates: start: 20211119, end: 20211119
  5. CARBOPLATIN [Concomitant]
     Active Substance: CARBOPLATIN
     Indication: Non-small cell lung cancer
     Dosage: UNK
     Route: 041
     Dates: start: 20211015, end: 20211015
  6. CARBOPLATIN [Concomitant]
     Active Substance: CARBOPLATIN
     Dosage: UNK
     Route: 041
     Dates: start: 20211119, end: 20211119
  7. PACLITAXEL [Concomitant]
     Active Substance: PACLITAXEL
     Indication: Non-small cell lung cancer
     Dosage: UNK, QD
     Route: 041
     Dates: start: 20211015, end: 20211015
  8. PACLITAXEL [Concomitant]
     Active Substance: PACLITAXEL
     Dosage: UNK, QD
     Route: 041
     Dates: start: 20211119, end: 20211119

REACTIONS (1)
  - Hepatic function abnormal [Unknown]
